FAERS Safety Report 6240380-8 (Version None)
Quarter: 2009Q2

REPORT INFORMATION
  Report Type: 
  Country: None (occurrence: None)
  Receive Date: 20090623
  Receipt Date: 20080606
  Transmission Date: 20091009
  Serious: No
  Sender: FDA-Public Use
  Company Number: US-ASTRAZENECA-2008UW11462

PATIENT
  Age: 82 Year
  Sex: Male
  Weight: 72.6 kg

DRUGS (9)
  1. PULMICORT RESPULES [Suspect]
     Indication: ASTHMA
     Route: 055
     Dates: start: 20060101
  2. FORADIL [Concomitant]
  3. SPIRIVA [Concomitant]
  4. BENAZEPRIL HYDROCHLORIDE [Concomitant]
  5. FELODIPINE [Concomitant]
  6. FINASTERIDE [Concomitant]
  7. TERAZOSIN HCL [Concomitant]
  8. AZMACORT [Concomitant]
  9. BETAMETHASONE [Concomitant]

REACTIONS (1)
  - CONTUSION [None]
